FAERS Safety Report 7438372-6 (Version None)
Quarter: 2011Q2

REPORT INFORMATION
  Report Type: 
  Country: None (occurrence: None)
  Receive Date: 20110426
  Receipt Date: 20110403
  Transmission Date: 20111010
  Serious: Yes (Hospitalization, Other)
  Sender: FDA-Public Use
  Company Number: US-BAYER-2011-018455

PATIENT
  Age: 32 Year
  Sex: Female
  Weight: 79.365 kg

DRUGS (8)
  1. GABAPENTIN [Concomitant]
     Indication: NEURALGIA
     Dosage: 300 MG, TID
     Route: 048
     Dates: start: 20000501
  2. CALCIUM [Concomitant]
     Dosage: UNK UNK, QD
     Route: 048
     Dates: start: 20090701
  3. YAZ [Suspect]
     Indication: ACNE
     Dosage: UNK UNK, QD
     Route: 048
     Dates: start: 20021101, end: 20100301
  4. GABAPENTIN [Concomitant]
  5. OCELLA [Suspect]
     Indication: ACNE
     Dosage: UNK UNK, QD
     Route: 048
     Dates: start: 20021101, end: 20100301
  6. YASMIN [Suspect]
     Indication: ACNE
     Dosage: UNK UNK, QD
     Route: 048
     Dates: start: 20021101, end: 20100301
  7. PREDNISONE [Concomitant]
     Indication: DEMYELINATING POLYNEUROPATHY
     Dosage: 10 MG, QD
     Route: 048
     Dates: start: 20090601, end: 20100701
  8. MULTI-VITAMIN [Concomitant]
     Dosage: UNK UNK, QD
     Route: 048
     Dates: start: 20090701, end: 20100327

REACTIONS (1)
  - PULMONARY EMBOLISM [None]
